FAERS Safety Report 23674427 (Version 3)
Quarter: 2024Q2

REPORT INFORMATION
  Report Type: Spontaneous
  Country: AU (occurrence: AU)
  Receive Date: 20240326
  Receipt Date: 20240612
  Transmission Date: 20240716
  Serious: Yes (Hospitalization)
  Sender: FDA-Public Use
  Company Number: AU-ABBVIE-5692276

PATIENT
  Age: 78 Year
  Sex: Male

DRUGS (1)
  1. DAPSONE [Suspect]
     Active Substance: DAPSONE
     Indication: Pemphigoid
     Route: 065

REACTIONS (4)
  - Respiratory failure [Unknown]
  - Pemphigoid [Unknown]
  - Methaemoglobinaemia [Unknown]
  - Lethargy [Unknown]

NARRATIVE: CASE EVENT DATE: 20231001
